FAERS Safety Report 14155192 (Version 1)
Quarter: 2017Q4

REPORT INFORMATION
  Report Type: Spontaneous
  Country: US (occurrence: US)
  Receive Date: 20171103
  Receipt Date: 20171103
  Transmission Date: 20180321
  Serious: Yes (Other)
  Sender: FDA-Public Use
  Company Number: US-BAYER-2017-206400

PATIENT
  Age: 40 Year
  Sex: Female

DRUGS (1)
  1. MIRENA [Suspect]
     Active Substance: LEVONORGESTREL
     Indication: MIGRAINE
     Dosage: 20 MCG/24HR, CONT
     Route: 015
     Dates: start: 2014

REACTIONS (4)
  - Amenorrhoea [Recovered/Resolved]
  - Product use in unapproved indication [None]
  - Genital haemorrhage [Not Recovered/Not Resolved]
  - Drug effective for unapproved indication [None]

NARRATIVE: CASE EVENT DATE: 2014
